FAERS Safety Report 26177662 (Version 1)
Quarter: 2025Q4

REPORT INFORMATION
  Report Type: Spontaneous
  Country: US (occurrence: US)
  Receive Date: 20251219
  Receipt Date: 20251219
  Transmission Date: 20260117
  Serious: Yes (Hospitalization, Other)
  Sender: AMGEN
  Company Number: US-AMGEN-USASP2025246815

PATIENT

DRUGS (3)
  1. ETANERCEPT [Suspect]
     Active Substance: ETANERCEPT
     Indication: Immunosuppression
     Dosage: UNK
     Route: 040
  2. ETANERCEPT [Suspect]
     Active Substance: ETANERCEPT
     Indication: Off label use
  3. HEPARIN [Concomitant]
     Active Substance: HEPARIN SODIUM

REACTIONS (11)
  - Abdominal pain [Unknown]
  - Clostridium difficile infection [Unknown]
  - Obstruction gastric [Recovered/Resolved]
  - Failure to thrive [Unknown]
  - Ill-defined disorder [Unknown]
  - Postoperative ileus [Unknown]
  - Colon injury [Unknown]
  - Intra-abdominal fluid collection [Unknown]
  - Insulin C-peptide increased [Unknown]
  - Insulin C-peptide decreased [Unknown]
  - Off label use [Unknown]
